FAERS Safety Report 5916786-0 (Version None)
Quarter: 2008Q4

REPORT INFORMATION
  Report Type: 
  Country: None (occurrence: None)
  Receive Date: 20081013
  Receipt Date: 20081001
  Transmission Date: 20090506
  Serious: Yes (Other)
  Sender: FDA-Public Use
  Company Number: US-PFIZER INC-2008077987

PATIENT
  Sex: Female
  Weight: 46.7 kg

DRUGS (12)
  1. CHANTIX [Suspect]
     Indication: SMOKING CESSATION THERAPY
     Dates: start: 20080908, end: 20080910
  2. SUCRALFATE [Concomitant]
  3. PROTONIX [Concomitant]
  4. CYMBALTA [Concomitant]
     Indication: DEPRESSION
  5. VITAMINS [Concomitant]
  6. MILK THISTLE [Concomitant]
  7. CYCLOBENZAPRINE HCL [Concomitant]
  8. OXYCODONE HCL [Concomitant]
     Indication: PAIN
  9. PROVIGIL [Concomitant]
  10. RANITIDINE [Concomitant]
  11. LUNESTA [Concomitant]
  12. DIAZEPAM [Concomitant]

REACTIONS (3)
  - DEPRESSION [None]
  - SELF INJURIOUS BEHAVIOUR [None]
  - SUICIDAL BEHAVIOUR [None]
